FAERS Safety Report 4292519-1 (Version None)
Quarter: 2004Q1

REPORT INFORMATION
  Report Type: 
  Country: None (occurrence: None)
  Receive Date: 20040126
  Receipt Date: 20031007
  Transmission Date: 20041129
  Serious: No
  Sender: FDA-Public Use
  Company Number: USA031049257

PATIENT
  Age: 76 Year
  Sex: Male
  Weight: 64 kg

DRUGS (3)
  1. FORTEO [Suspect]
     Indication: OSTEOPOROSIS
     Dosage: 20 UG/DAY
     Dates: start: 20030701
  2. CALCIUM PLUS D [Concomitant]
  3. MVI (MVI) [Concomitant]

REACTIONS (6)
  - CHILLS [None]
  - FATIGUE [None]
  - MUSCLE CRAMP [None]
  - MUSCULAR WEAKNESS [None]
  - PYREXIA [None]
  - TREMOR [None]
